FAERS Safety Report 19064631 (Version 1)
Quarter: 2021Q1

REPORT INFORMATION
  Report Type: Spontaneous
  Country: US (occurrence: US)
  Receive Date: 20210326
  Receipt Date: 20210326
  Transmission Date: 20210420
  Serious: Yes (Other)
  Sender: FDA-Public Use
  Company Number: US-ORGANON-2010USA000033

PATIENT
  Sex: Female

DRUGS (1)
  1. ASMANEX [Suspect]
     Active Substance: MOMETASONE FUROATE
     Dosage: 220 MICROGRAM, 30 DOSE UNIT
     Route: 055
     Dates: start: 202007, end: 20200831

REACTIONS (6)
  - Exposure to contaminated device [Unknown]
  - Wrong technique in device usage process [Unknown]
  - Cough [Unknown]
  - Cataract [Unknown]
  - Product contamination physical [Unknown]
  - Foreign body in throat [Unknown]

NARRATIVE: CASE EVENT DATE: 2020
